FAERS Safety Report 6637906-9 (Version None)
Quarter: 2010Q1

REPORT INFORMATION
  Report Type: 
  Country: None (occurrence: None)
  Receive Date: 20100317
  Receipt Date: 20100305
  Transmission Date: 20100710
  Serious: Yes (Other)
  Sender: FDA-Public Use
  Company Number: PHHY2010GB14215

PATIENT
  Age: 6 Year
  Sex: Male

DRUGS (2)
  1. METHYLPHENIDATE [Suspect]
     Dosage: 10 MG DAILY
  2. VALPROATE SODIUM [Suspect]
     Dosage: 300 MG DAILY

REACTIONS (5)
  - HALLUCINATION, AUDITORY [None]
  - HALLUCINATION, VISUAL [None]
  - IRRITABILITY [None]
  - MOOD ALTERED [None]
  - PHOBIA [None]
